FAERS Safety Report 8348175 (Version 5)
Quarter: 2014Q3

REPORT INFORMATION
  Report Type: Report from Study
  Country: US (occurrence: US)
  Receive Date: 20120123
  Receipt Date: 20140717
  Transmission Date: 20150326
  Serious: Yes (Hospitalization)
  Sender: FDA-Public Use
  Company Number: US-PFIZER INC-2012017081

PATIENT
  Age: 33 Year
  Sex: Female
  Weight: 91.2 kg

DRUGS (2)
  1. APAP [Suspect]
     Active Substance: ACETAMINOPHEN
     Indication: SELF INJURIOUS BEHAVIOUR
     Dosage: 60 TO 80 TABLETS
     Route: 048
     Dates: start: 20120104, end: 20120104
  2. IBUPROFEN. [Suspect]
     Active Substance: IBUPROFEN
     Indication: SELF INJURIOUS BEHAVIOUR
     Dosage: 40 TABLETS
     Route: 048
     Dates: start: 20120104, end: 20120104

REACTIONS (3)
  - Self injurious behaviour [Recovered/Resolved]
  - Intentional overdose [Recovered/Resolved]
  - Vomiting [Recovered/Resolved]

NARRATIVE: CASE EVENT DATE: 20120104
